FAERS Safety Report 5927497-X (Version None)
Quarter: 2008Q4

REPORT INFORMATION
  Report Type: 
  Country: None (occurrence: None)
  Receive Date: 20081021
  Receipt Date: 20081021
  Transmission Date: 20090506
  Serious: Yes (Hospitalization)
  Sender: FDA-Public Use
  Company Number: None

PATIENT
  Sex: Female
  Weight: 14.3 kg

DRUGS (11)
  1. PREDNISONE TAB [Suspect]
     Dosage: 210 MG
  2. CYCLOPHOSPHAMIDE [Concomitant]
  3. CARBOPLATIN [Concomitant]
  4. CISPLATIN [Concomitant]
  5. DEXAMETHASONE [Concomitant]
  6. DOXORUBICIN HCL [Concomitant]
  7. ETOPOSIDE [Concomitant]
  8. HYDROCORTISONE [Concomitant]
  9. MELPHALAN [Concomitant]
  10. METHYLPREDNISOLONE 16MG TAB [Concomitant]
  11. VINCRISTINE [Concomitant]

REACTIONS (11)
  - ADENOVIRUS INFECTION [None]
  - ASPIRATION TRACHEAL ABNORMAL [None]
  - FEBRILE NEUTROPENIA [None]
  - GASTROINTESTINAL HAEMORRHAGE [None]
  - GENERAL PHYSICAL HEALTH DETERIORATION [None]
  - MUCOSAL INFLAMMATION [None]
  - MYDRIASIS [None]
  - OBSTRUCTIVE AIRWAYS DISORDER [None]
  - PYREXIA [None]
  - RESPIRATORY FAILURE [None]
  - UNRESPONSIVE TO STIMULI [None]
